FAERS Safety Report 7497783 (Version 3)
Quarter: 2013Q4

REPORT INFORMATION
  Report Type: Spontaneous
  Country: US (occurrence: US)
  Receive Date: 20100722
  Receipt Date: 20131106
  Transmission Date: 20140711
  Serious: Yes (Hospitalization, Other)
  Sender: FDA-Public Use
  Company Number: US-AMGEN-QUU424506

PATIENT
  Age: 29 Year
  Sex: Female

DRUGS (3)
  1. ENBREL [Suspect]
     Indication: RHEUMATOID ARTHRITIS
     Dosage: 50 MG, QWK
     Route: 058
     Dates: start: 200711
  2. MULTIVITAMINS, PLAIN [Concomitant]
     Dosage: UNK, QD
  3. ZYRTEK [Concomitant]
     Dosage: UNK UNK, AS NECESSARY

REACTIONS (5)
  - Complication of pregnancy [Recovered/Resolved]
  - Placenta praevia [Unknown]
  - Caesarean section [Recovered/Resolved]
  - Procedural nausea [Recovered/Resolved]
  - Procedural vomiting [Recovered/Resolved]
